FAERS Safety Report 21096660 (Version 3)
Quarter: 2022Q3

REPORT INFORMATION
  Report Type: Report from Study
  Country: ES (occurrence: ES)
  Receive Date: 20220718
  Receipt Date: 20220831
  Transmission Date: 20221027
  Serious: Yes (Life-Threatening, Hospitalization, Other)
  Sender: FDA-Public Use
  Company Number: ES-CELLTRION HEALTHCARE HUNGARY KFT-2022ES010578

PATIENT
  Age: 82 Year
  Sex: Female
  Weight: 48 kg

DRUGS (19)
  1. RITUXIMAB [Suspect]
     Active Substance: RITUXIMAB
     Indication: Marginal zone lymphoma
     Dosage: (558.75 MG), ON DAYS 1, 8, 15 AND 22 OF CYCLE 1 AND ON DAY 1 OF CYCLES 2 TO 5
     Route: 042
     Dates: start: 20220614
  2. TAFASITAMAB [Suspect]
     Active Substance: TAFASITAMAB
     Indication: Marginal zone lymphoma
     Dosage: ON DAYS 1, 8, 15 AND 22 OF CYCLES 1 TO 3 AND ON DAYS 1 AND 15 (EVERY SECOND WEEK) OF CYCLES 4 TO 12
     Route: 042
     Dates: start: 20220614
  3. LENALIDOMIDE [Suspect]
     Active Substance: LENALIDOMIDE
     Indication: Marginal zone lymphoma
     Dosage: EVERY DAY ON DAYS 1 TO 21 OF EVERY CYCLE AT APPROXIMATELY, THE SAME TIME EVERY DAY FOR 12 CYCLES
     Route: 048
     Dates: start: 20220614
  4. LENALIDOMIDE [Suspect]
     Active Substance: LENALIDOMIDE
     Dosage: EVERY DAY ON DAYS 1 TO 21 OF EVERY CYCLE AT APPROXIMATELY, THE SAME TIME EVERY DAY FOR 12 CYCLES
     Route: 048
     Dates: start: 20220620, end: 20220621
  5. LERCANIDIPINE [Concomitant]
     Active Substance: LERCANIDIPINE
     Dosage: UNK
     Dates: start: 20120511, end: 20220625
  6. FOLIC ACID [Concomitant]
     Active Substance: FOLIC ACID
     Dosage: UNK
     Dates: start: 20121227
  7. CLARAL [Concomitant]
     Dosage: UNK
     Dates: start: 20220621
  8. CALCIUM CARBONATE\CHOLECALCIFEROL [Concomitant]
     Active Substance: CALCIUM CARBONATE\CHOLECALCIFEROL
     Dosage: UNK
     Dates: start: 20120709
  9. OMEPRAZOLE [Concomitant]
     Active Substance: OMEPRAZOLE
     Dosage: UNK
     Dates: start: 20220614
  10. PREDNISONE [Concomitant]
     Active Substance: PREDNISONE
     Dosage: UNK
     Dates: start: 20220621
  11. ACYCLOVIR SODIUM [Concomitant]
     Active Substance: ACYCLOVIR SODIUM
     Dosage: UNK
     Dates: start: 20220614, end: 20220621
  12. SULFAMETHOXAZOLE [Concomitant]
     Active Substance: SULFAMETHOXAZOLE
     Dosage: UNK
     Dates: start: 20220614
  13. ASPIRIN [Concomitant]
     Active Substance: ASPIRIN
     Dosage: UNK
     Dates: start: 20220614
  14. ZOLEDRONIC ACID [Concomitant]
     Active Substance: ZOLEDRONIC ACID
     Dosage: UNK
     Dates: start: 20220614
  15. POLARAMINE [Concomitant]
     Active Substance: DEXCHLORPHENIRAMINE MALEATE
     Dosage: UNK
     Dates: start: 20220621
  16. CALCIFEDIOL [Concomitant]
     Active Substance: CALCIFEDIOL
     Dosage: UNK
     Dates: start: 20180919
  17. LAMOTRIGINE [Concomitant]
     Active Substance: LAMOTRIGINE
     Dosage: UNK
     Dates: start: 20120511, end: 20220625
  18. ENALAPRIL [Concomitant]
     Active Substance: ENALAPRIL
     Dosage: UNK
     Dates: start: 20120511
  19. TRIMETHOPRIM [Concomitant]
     Active Substance: TRIMETHOPRIM
     Dosage: UNK
     Dates: start: 20220614, end: 20220621

REACTIONS (7)
  - Thrombocytopenia [Unknown]
  - Acute kidney injury [Recovered/Resolved]
  - Hyperkalaemia [Unknown]
  - Hyponatraemia [Unknown]
  - General physical health deterioration [Recovered/Resolved]
  - COVID-19 [Recovering/Resolving]
  - Off label use [Unknown]

NARRATIVE: CASE EVENT DATE: 20220623
